FAERS Safety Report 22634803 (Version 1)
Quarter: 2023Q2

REPORT INFORMATION
  Report Type: Spontaneous
  Country: US (occurrence: None)
  Receive Date: 20230622
  Receipt Date: 20230622
  Transmission Date: 20230721
  Serious: Yes (Life-Threatening, Hospitalization)
  Sender: FDA-Public Use
  Company Number: None

PATIENT
  Age: 69 Year
  Sex: Female

DRUGS (12)
  1. BRAFTOVI [Suspect]
     Active Substance: ENCORAFENIB
     Indication: Adenocarcinoma of colon
     Dosage: FREQUENCY : DAILY;?
     Route: 048
     Dates: start: 20230209, end: 20230607
  2. BRAFTOVI [Suspect]
     Active Substance: ENCORAFENIB
     Indication: BRAF V600E mutation positive
  3. BRAFTOVI [Suspect]
     Active Substance: ENCORAFENIB
     Indication: BRAF V600E mutation positive
  4. BRAFTOVI [Suspect]
     Active Substance: ENCORAFENIB
     Indication: BRAF V600E mutation positive
  5. doxyxycline 100mg [Concomitant]
     Dates: start: 20230214, end: 20230607
  6. AMLODIPINE [Concomitant]
     Active Substance: AMLODIPINE BESYLATE
     Dates: end: 20230607
  7. Pot chloride 10mEq [Concomitant]
  8. DULOXETINE [Concomitant]
     Active Substance: DULOXETINE
  9. LEVOTHYROXINE [Concomitant]
     Active Substance: LEVOTHYROXINE
  10. megestrol 40mg/ml suspension [Concomitant]
     Dates: end: 20230607
  11. lidocaine-prilocaine topical cream 2.5%-2.5% [Concomitant]
     Dates: end: 20230607
  12. ondansetron 8mg odt [Concomitant]

REACTIONS (5)
  - Electrocardiogram QT prolonged [None]
  - Ventricular tachycardia [None]
  - Supraventricular tachycardia [None]
  - Constipation [None]
  - Weight decreased [None]

NARRATIVE: CASE EVENT DATE: 20230607
